FAERS Safety Report 10880140 (Version 2)
Quarter: 2015Q2

REPORT INFORMATION
  Report Type: Spontaneous
  Country: US (occurrence: US)
  Receive Date: 20150302
  Receipt Date: 20150414
  Transmission Date: 20150821
  Serious: No
  Sender: FDA-Public Use
  Company Number: US-PFIZER INC-2015070815

PATIENT
  Age: 72 Year
  Sex: Male
  Weight: 85.26 kg

DRUGS (1)
  1. LYRICA [Suspect]
     Active Substance: PREGABALIN
     Indication: DIABETIC NEUROPATHY
     Dosage: 225 MG, 2X/DAY [ONE AT 7 O^CLOCK IN AM AND THEN NEXT AT 11 O^CLOCK IN PM]
     Route: 048
     Dates: start: 201411

REACTIONS (2)
  - Burning sensation [Unknown]
  - Drug ineffective [Unknown]
